FAERS Safety Report 24350231 (Version 1)
Quarter: 2024Q3

REPORT INFORMATION
  Report Type: Spontaneous
  Country: US (occurrence: None)
  Receive Date: 20240921
  Receipt Date: 20240921
  Transmission Date: 20241017
  Serious: Yes (Hospitalization)
  Sender: Public
  Company Number: None

PATIENT
  Sex: Female

DRUGS (1)
  1. HUMIRA [Suspect]
     Active Substance: ADALIMUMAB
     Indication: Asthma
     Dosage: FREQ: INJECT 40 MG UNDER THE SKIN EVERY 14 DAYS.
     Route: 058
     Dates: start: 20210623

REACTIONS (1)
  - Hospitalisation [None]
